FAERS Safety Report 19185947 (Version 2)
Quarter: 2021Q2

REPORT INFORMATION
  Report Type: Report from Study
  Country: GT (occurrence: GT)
  Receive Date: 20210427
  Receipt Date: 20210501
  Transmission Date: 20210717
  Serious: Yes (Death)
  Sender: FDA-Public Use
  Company Number: GT-ASTRAZENECA-2021A349463

PATIENT
  Age: 46 Year
  Sex: Male

DRUGS (1)
  1. FORXIGA [Suspect]
     Active Substance: DAPAGLIFLOZIN
     Indication: DIABETES MELLITUS
     Route: 048
     Dates: start: 202007, end: 202007

REACTIONS (3)
  - Liver disorder [Fatal]
  - Off label use [Unknown]
  - Lung disorder [Fatal]

NARRATIVE: CASE EVENT DATE: 202007
